FAERS Safety Report 7799300-7 (Version None)
Quarter: 2011Q4

REPORT INFORMATION
  Report Type: 
  Country: None (occurrence: None)
  Receive Date: 20111006
  Receipt Date: 20110926
  Transmission Date: 20120403
  Serious: Yes (Life-Threatening, Hospitalization)
  Sender: FDA-Public Use
  Company Number: IN-BAYER-201024650GPV

PATIENT
  Age: 67 Year
  Sex: Female
  Weight: 55 kg

DRUGS (14)
  1. RIVAROXABAN [Interacting]
     Dosage: 2.5 MG, BID
     Route: 048
     Dates: start: 20091223, end: 20091223
  2. RANTAC [Concomitant]
  3. SORBITRATE [Concomitant]
  4. GELUSIL [ALUMINIUM HYDROXIDE,MAGNESIUM HYDROXIDE,SIMETICONE] [Concomitant]
  5. PANTOPRAZOLE [Concomitant]
  6. NICORANDIL [Concomitant]
  7. NITRAZEPAM [Concomitant]
  8. RANITIDINE [Concomitant]
  9. LEVOTHYROXINE SODIUM [Concomitant]
  10. RIVAROXABAN [Interacting]
     Indication: ACUTE CORONARY SYNDROME
     Dosage: 2.5 MG, BID
     Route: 048
     Dates: start: 20091224, end: 20100428
  11. ACETYLSALICYLIC ACID SRT [Suspect]
  12. ATORVASTATIN [Concomitant]
  13. FERROUS SULFATE TAB [Concomitant]
  14. CLOPIDOGREL [Interacting]
     Indication: ACUTE CORONARY SYNDROME

REACTIONS (2)
  - MELAENA [None]
  - HAEMOGLOBIN DECREASED [None]
